FAERS Safety Report 6009953-1 (Version None)
Quarter: 2008Q4

REPORT INFORMATION
  Report Type: 
  Country: None (occurrence: None)
  Receive Date: 20081216
  Receipt Date: 20081128
  Transmission Date: 20090506
  Serious: Yes (Other)
  Sender: FDA-Public Use
  Company Number: B0546919A

PATIENT
  Age: 57 Year
  Sex: Female

DRUGS (1)
  1. ALBENDAZOLE UNSPECIFIED TABLET (GENERIC) (ALBENDAZOLE) [Suspect]
     Indication: TOXOCARIASIS
     Dosage: 200 MG / THREE TIMES PER DAY / ORAL
     Route: 048
     Dates: start: 20080325, end: 20080422

REACTIONS (2)
  - LIVER DISORDER [None]
  - TRANSAMINASES INCREASED [None]
